FAERS Safety Report 4860309-4 (Version None)
Quarter: 2005Q4

REPORT INFORMATION
  Report Type: 
  Country: None (occurrence: None)
  Receive Date: 20051215
  Receipt Date: 20051209
  Transmission Date: 20060501
  Serious: Yes (Hospitalization)
  Sender: FDA-Public Use
  Company Number: 2005BI022019

PATIENT
  Age: 51 Year
  Sex: Female
  Weight: 43.9989 kg

DRUGS (1)
  1. AVONEX [Suspect]
     Indication: MULTIPLE SCLEROSIS
     Dosage: 30 UG; QW; IM
     Route: 030
     Dates: start: 20020901

REACTIONS (5)
  - DIFFICULTY IN WALKING [None]
  - FALL [None]
  - HEAD INJURY [None]
  - HIP FRACTURE [None]
  - RIB FRACTURE [None]
